FAERS Safety Report 13554177 (Version 2)
Quarter: 2017Q3

REPORT INFORMATION
  Report Type: Spontaneous
  Country: CH (occurrence: CH)
  Receive Date: 20170517
  Receipt Date: 20170801
  Transmission Date: 20171127
  Serious: Yes (Life-Threatening)
  Sender: FDA-Public Use
  Company Number: CH-ASTRAZENECA-2017SE51782

PATIENT
  Age: 45 Year
  Sex: Female
  Weight: 71 kg

DRUGS (17)
  1. SEROQUEL [Suspect]
     Active Substance: QUETIAPINE FUMARATE
     Indication: PERSONALITY DISORDER
     Route: 048
  2. SEROQUEL [Suspect]
     Active Substance: QUETIAPINE FUMARATE
     Indication: PSYCHOTIC DISORDER
     Dosage: SEROQUEL XR, 50 MG DAILY
     Route: 048
     Dates: start: 20161108, end: 20161114
  3. SEROQUEL [Suspect]
     Active Substance: QUETIAPINE FUMARATE
     Indication: PERSONALITY DISORDER
     Dosage: SEROQUEL XR, 50 MG DAILY
     Route: 048
     Dates: start: 20161108, end: 20161114
  4. SEROQUEL [Suspect]
     Active Substance: QUETIAPINE FUMARATE
     Indication: PSYCHOTIC DISORDER
     Dosage: SEROQUEL XR, 200 MG DAILY
     Route: 048
     Dates: start: 20161115, end: 20161116
  5. DAFALGAN [Concomitant]
     Active Substance: ACETAMINOPHEN
     Dosage: 1.0G AS REQUIRED
     Dates: start: 20161104, end: 20161214
  6. SEROQUEL [Suspect]
     Active Substance: QUETIAPINE FUMARATE
     Indication: PERSONALITY DISORDER
     Dosage: SEROQUEL XR, 200 MG DAILY
     Route: 048
     Dates: start: 20161115, end: 20161116
  7. SEROQUEL [Suspect]
     Active Substance: QUETIAPINE FUMARATE
     Indication: PSYCHOTIC DISORDER
     Dosage: SEROQUEL XR, 400 MG DAILY
     Route: 048
     Dates: start: 20161117, end: 20161120
  8. SEROQUEL [Suspect]
     Active Substance: QUETIAPINE FUMARATE
     Indication: PSYCHOTIC DISORDER
     Route: 048
  9. SEROQUEL [Suspect]
     Active Substance: QUETIAPINE FUMARATE
     Indication: PERSONALITY DISORDER
     Dosage: SEROQUEL XR, 400 + 200 MG DAILY
     Route: 048
     Dates: start: 20161121, end: 20161127
  10. SEROQUEL [Suspect]
     Active Substance: QUETIAPINE FUMARATE
     Indication: PSYCHOTIC DISORDER
     Dosage: SEROQUEL XR, 400 + 200 MG DAILY
     Route: 048
     Dates: start: 20161121, end: 20161127
  11. VOLTARENE [Concomitant]
     Active Substance: DICLOFENAC SODIUM
     Dates: start: 20161104, end: 20161127
  12. TEMESTA [Concomitant]
     Active Substance: LORAZEPAM
     Dosage: 2.5MG AS REQUIRED
     Dates: start: 20161104, end: 20161214
  13. IMOVANE [Concomitant]
     Active Substance: ZOPICLONE
     Dosage: 7.5MG AS REQUIRED
     Dates: start: 20161104, end: 20161127
  14. PANTOPRAZOLE [Concomitant]
     Active Substance: PANTOPRAZOLE
     Dosage: DAILY
     Dates: start: 20161104, end: 20161214
  15. MELATONIN [Concomitant]
     Active Substance: MELATONIN
     Dates: start: 20161104, end: 20161127
  16. SEROQUEL [Suspect]
     Active Substance: QUETIAPINE FUMARATE
     Indication: PERSONALITY DISORDER
     Dosage: SEROQUEL XR, 400 MG DAILY
     Route: 048
     Dates: start: 20161117, end: 20161120
  17. TRAMADOL MEPHA [Concomitant]
     Active Substance: TRAMADOL HYDROCHLORIDE
     Dosage: 50.0MG AS REQUIRED
     Dates: start: 20161104, end: 20161127

REACTIONS (1)
  - Gastrointestinal necrosis [Recovered/Resolved with Sequelae]
